FAERS Safety Report 8327440-2 (Version None)
Quarter: 2012Q2

REPORT INFORMATION
  Report Type: 
  Country: None (occurrence: None)
  Receive Date: 20120426
  Receipt Date: 20120419
  Transmission Date: 20120825
  Serious: Yes (Hospitalization)
  Sender: FDA-Public Use
  Company Number: 2012031793

PATIENT
  Age: 55 Year
  Sex: Female
  Weight: 95.2554 kg

DRUGS (41)
  1. DILTIAZEM [Concomitant]
  2. LEVOXYL [Concomitant]
  3. POTASSIUM CL (POTASSIUM CHLORIDE) [Concomitant]
  4. FOLIC ACID [Concomitant]
  5. WARFARIN SODIUM [Concomitant]
  6. VITAMIN D [Concomitant]
  7. PRIVIGEN [Suspect]
     Indication: HYPOGAMMAGLOBULINAEMIA
     Dosage: 25 G 1X/3 WEEKS, MAX RATE OF 454 ML PER HOUR INTRAVENOUS (NOT OTHERWISE SPECIFIED)
     Route: 042
     Dates: start: 20111122
  8. PRIVIGEN [Suspect]
     Indication: MULTIPLE SCLEROSIS
     Dosage: 25 G 1X/3 WEEKS, MAX RATE OF 454 ML PER HOUR INTRAVENOUS (NOT OTHERWISE SPECIFIED)
     Route: 042
     Dates: start: 20111122
  9. PRIVIGEN [Suspect]
     Indication: SYSTEMIC LUPUS ERYTHEMATOSUS
     Dosage: 25 G 1X/3 WEEKS, MAX RATE OF 454 ML PER HOUR INTRAVENOUS (NOT OTHERWISE SPECIFIED)
     Route: 042
     Dates: start: 20111122
  10. DIOVAN [Concomitant]
  11. VITAMIN B 12 (VITAMIN B12 NOS) [Concomitant]
  12. CALCIUM [Concomitant]
  13. VITAMIN B COMPLEX CAP [Concomitant]
  14. PRIVIGEN [Suspect]
     Indication: MULTIPLE SCLEROSIS
     Dosage: 20 GM VIAL INTRAVENOUS (NOT OTHERWISE SPECIFIED)
     Route: 042
     Dates: start: 20111109
  15. PRIVIGEN [Suspect]
     Indication: SYSTEMIC LUPUS ERYTHEMATOSUS
     Dosage: 20 GM VIAL INTRAVENOUS (NOT OTHERWISE SPECIFIED)
     Route: 042
     Dates: start: 20111109
  16. PRIVIGEN [Suspect]
     Indication: HYPOGAMMAGLOBULINAEMIA
     Dosage: 20 GM VIAL INTRAVENOUS (NOT OTHERWISE SPECIFIED)
     Route: 042
     Dates: start: 20111109
  17. CRESTOR [Concomitant]
  18. PLAVIX [Concomitant]
  19. MORPHINE SULFATE CR (MORPHINE SULFATE) [Concomitant]
  20. PERCOCET [Concomitant]
  21. PRIVIGEN [Suspect]
     Indication: HYPOGAMMAGLOBULINAEMIA
  22. PRIVIGEN [Suspect]
     Indication: MULTIPLE SCLEROSIS
  23. PRIVIGEN [Suspect]
     Indication: SYSTEMIC LUPUS ERYTHEMATOSUS
  24. PRIVIGEN [Suspect]
     Indication: MULTIPLE SCLEROSIS
  25. PRIVIGEN [Suspect]
     Indication: HYPOGAMMAGLOBULINAEMIA
  26. PRIVIGEN [Suspect]
     Indication: SYSTEMIC LUPUS ERYTHEMATOSUS
  27. PRIVIGEN [Suspect]
     Indication: SYSTEMIC LUPUS ERYTHEMATOSUS
     Dosage: 5 GM VIAL; MAX RATE 454 ML/HR (151 DROPS/MIN) INTRAVENOUS (NOT OTHERWISE SPECIFIED)
     Route: 042
     Dates: start: 20111109
  28. PRIVIGEN [Suspect]
     Indication: HYPOGAMMAGLOBULINAEMIA
     Dosage: 5 GM VIAL; MAX RATE 454 ML/HR (151 DROPS/MIN) INTRAVENOUS (NOT OTHERWISE SPECIFIED)
     Route: 042
     Dates: start: 20111109
  29. PRIVIGEN [Suspect]
     Indication: MULTIPLE SCLEROSIS
     Dosage: 5 GM VIAL; MAX RATE 454 ML/HR (151 DROPS/MIN) INTRAVENOUS (NOT OTHERWISE SPECIFIED)
     Route: 042
     Dates: start: 20111109
  30. PREDNISONE [Concomitant]
  31. AZATHIOPRINE [Concomitant]
  32. ISOSORBIDE MN (ISOSORBIDE MONONITRATE) [Concomitant]
  33. PRILOSEC [Concomitant]
  34. NEURONTIN [Concomitant]
  35. HUMALOG [Concomitant]
  36. NITROSTAT [Concomitant]
  37. LANTUS [Concomitant]
  38. ASPIRIN [Concomitant]
  39. ATELVIA (RISENDRONATE SODIUM) [Concomitant]
  40. SALAGEN [Concomitant]
  41. MORPHINE SULFATE IR (MORPHINE SULFATE) [Concomitant]

REACTIONS (4)
  - INTERNATIONAL NORMALISED RATIO INCREASED [None]
  - OFF LABEL USE [None]
  - HEADACHE [None]
  - FATIGUE [None]
